FAERS Safety Report 7866882-6 (Version None)
Quarter: 2011Q4

REPORT INFORMATION
  Report Type: 
  Country: None (occurrence: None)
  Receive Date: 20111028
  Receipt Date: 20111014
  Transmission Date: 20120403
  Serious: Yes (Death, Hospitalization)
  Sender: FDA-Public Use
  Company Number: CN-GENZYME-FLUD-1001387

PATIENT
  Sex: Male
  Weight: 69 kg

DRUGS (7)
  1. FLUDARA [Suspect]
     Indication: ACUTE MYELOID LEUKAEMIA
     Dosage: 50 MG, QDX5
     Route: 042
     Dates: start: 20110621, end: 20110625
  2. TROPISETRON [Concomitant]
     Indication: ANTIEMETIC SUPPORTIVE CARE
     Dosage: 5 MG, QD
     Route: 042
     Dates: start: 20110620, end: 20110628
  3. SODIUM BICARBONATE [Concomitant]
     Indication: PRODUCT USED FOR UNKNOWN INDICATION
     Dosage: 125 ML, QD
     Route: 042
     Dates: start: 20110620, end: 20110625
  4. CYTARABINE [Suspect]
     Indication: ACUTE MYELOID LEUKAEMIA
     Dosage: 3.3 G, QDX5
     Route: 042
     Dates: start: 20110621, end: 20110625
  5. GLYCYRRHIZIN [Concomitant]
     Indication: PROPHYLAXIS
     Dosage: 160 MG, QD
     Route: 042
     Dates: start: 20110620, end: 20110628
  6. NEUPOGEN [Suspect]
     Indication: ACUTE MYELOID LEUKAEMIA
     Dosage: 334 MCG, QDX6
     Route: 042
     Dates: start: 20110620, end: 20110625
  7. ALLOPURINOL [Concomitant]
     Indication: BLOOD URIC ACID ABNORMAL
     Dosage: 0.1 UNK, TID
     Route: 048
     Dates: start: 20110620, end: 20110625

REACTIONS (4)
  - LUNG INFECTION [None]
  - INFECTION [None]
  - BONE MARROW FAILURE [None]
  - PYREXIA [None]
